FAERS Safety Report 25095118 (Version 1)
Quarter: 2025Q1

REPORT INFORMATION
  Report Type: Report from Study
  Country: CA (occurrence: CA)
  Receive Date: 20250319
  Receipt Date: 20250319
  Transmission Date: 20250409
  Serious: Yes (Other)
  Sender: LUNDBECK
  Company Number: CA-LUNDBECK-DKLU4008980

PATIENT
  Age: 30 Year
  Sex: Female

DRUGS (1)
  1. VYEPTI [Suspect]
     Active Substance: EPTINEZUMAB-JJMR
     Indication: Migraine
     Dosage: 100 MILLIGRAM
     Route: 041
     Dates: start: 20241220

REACTIONS (8)
  - Swollen tongue [Unknown]
  - Dyspnoea [Unknown]
  - Pruritus [Recovered/Resolved]
  - Erythema [Recovering/Resolving]
  - Hemiplegic migraine [Unknown]
  - Throat irritation [Unknown]
  - Throat tightness [Unknown]
  - Fatigue [Unknown]

NARRATIVE: CASE EVENT DATE: 20241220
